FAERS Safety Report 21003792 (Version 13)
Quarter: 2023Q4

REPORT INFORMATION
  Report Type: Spontaneous
  Country: CA (occurrence: CA)
  Receive Date: 20220624
  Receipt Date: 20231114
  Transmission Date: 20240110
  Serious: Yes (Other)
  Sender: FDA-Public Use
  Company Number: CA-PFIZER INC-202200468375

PATIENT
  Age: 31 Year
  Sex: Female

DRUGS (8)
  1. ABRILADA [Suspect]
     Active Substance: ADALIMUMAB-AFZB
     Indication: Crohn^s disease
     Dosage: 40 MG WEEKLY [PREFILLED SYRINGE]
     Route: 058
     Dates: start: 20220405, end: 2022
  2. ABRILADA [Suspect]
     Active Substance: ADALIMUMAB-AFZB
     Dosage: 40 MG, WEEKLY
     Route: 058
     Dates: start: 20220622
  3. ABRILADA [Suspect]
     Active Substance: ADALIMUMAB-AFZB
     Dosage: 40 MG, WEEKLY
     Route: 058
     Dates: start: 2022, end: 2023
  4. ABRILADA [Suspect]
     Active Substance: ADALIMUMAB-AFZB
     Dosage: 40 MG, WEEKLY (REINDUCTION THEN 40MG EVERY WEEK- NOT YET STARTED, DOSE: WEEK 0: 160MG, WEEK 2: 80MG
     Route: 058
  5. COLACE [Concomitant]
     Active Substance: DOCUSATE SODIUM
     Dosage: 1 DF
  6. INSULIN NOS [Concomitant]
     Active Substance: INSULIN NOS
     Indication: Type 1 diabetes mellitus
     Dosage: 1 DF
  7. PANTOPRAZOLE SODIUM [Concomitant]
     Active Substance: PANTOPRAZOLE SODIUM
     Dosage: 1 DF
  8. SENOKOT [Concomitant]
     Active Substance: SENNOSIDES
     Dosage: 1 DF

REACTIONS (9)
  - Pneumonia bacterial [Recovering/Resolving]
  - Hepatitis [Unknown]
  - Pneumonia [Unknown]
  - Pneumonitis [Unknown]
  - Cholecystectomy [Unknown]
  - Drug ineffective [Unknown]
  - Off label use [Unknown]
  - Abdominal pain upper [Unknown]
  - Condition aggravated [Unknown]

NARRATIVE: CASE EVENT DATE: 20220614
